FAERS Safety Report 16716029 (Version 1)
Quarter: 2019Q3

REPORT INFORMATION
  Report Type: Spontaneous
  Country: FR (occurrence: FR)
  Receive Date: 20190819
  Receipt Date: 20190819
  Transmission Date: 20191005
  Serious: Yes (Other)
  Sender: FDA-Public Use
  Company Number: FR-MYLANLABS-2019M1076510

PATIENT
  Age: 2 Year
  Sex: Female
  Weight: 11 kg

DRUGS (3)
  1. CISPLATINE [Concomitant]
     Active Substance: CISPLATIN
     Indication: BRAIN NEOPLASM
     Dosage: 108 MILLIGRAM, QD
     Route: 042
     Dates: start: 20180312
  2. ETOPOSIDE MYLAN [Suspect]
     Active Substance: ETOPOSIDE
     Indication: BRAIN NEOPLASM
     Dosage: 54 MILLIGRAM, CYCLE
     Route: 042
     Dates: start: 20180312, end: 20180314
  3. HOLOXAN [Suspect]
     Active Substance: IFOSFAMIDE
     Indication: BRAIN NEOPLASM
     Dosage: 810 MILLIGRAM, CYCLE
     Route: 042
     Dates: start: 20180312, end: 20180315

REACTIONS (2)
  - Tremor [Recovered/Resolved]
  - Encephalopathy [Recovered/Resolved]

NARRATIVE: CASE EVENT DATE: 20180316
